FAERS Safety Report 4540974-1 (Version None)
Quarter: 2004Q4

REPORT INFORMATION
  Report Type: 
  Country: None (occurrence: None)
  Receive Date: 20041228
  Receipt Date: 20041221
  Transmission Date: 20050328
  Serious: Yes (Hospitalization)
  Sender: FDA-Public Use
  Company Number: 2004AP05804

PATIENT
  Age: 66 Year
  Sex: Female
  Weight: 38 kg

DRUGS (5)
  1. OMEPRAL [Suspect]
     Indication: GASTRIC ULCER
     Dosage: 20 MG DAILY PO
     Route: 048
     Dates: start: 20040819, end: 20040830
  2. WARFARIN SODIUM [Suspect]
     Indication: PORTAL VEIN THROMBOSIS
     Dosage: 1 MG DAILY PO
     Route: 048
     Dates: start: 20040825, end: 20040830
  3. ISOVORIN [Suspect]
     Indication: HEPATIC NEOPLASM MALIGNANT
     Dosage: 10 MG DAILY
     Dates: start: 20040816, end: 20040820
  4. RANDA [Suspect]
     Indication: HEPATIC NEOPLASM MALIGNANT
     Dosage: 10 MG DAILY
     Dates: start: 20040816, end: 20040820
  5. FLUOROURACIL [Suspect]
     Indication: HEPATIC NEOPLASM MALIGNANT
     Dosage: 1700 MG DAILY
     Dates: start: 20040816, end: 20040820

REACTIONS (6)
  - ABDOMINAL PAIN [None]
  - DISEASE RECURRENCE [None]
  - HEPATIC FUNCTION ABNORMAL [None]
  - HEPATITIS [None]
  - HEPATITIS C [None]
  - THROMBOSIS [None]
